FAERS Safety Report 4520882-2 (Version None)
Quarter: 2004Q4

REPORT INFORMATION
  Report Type: 
  Country: None (occurrence: None)
  Receive Date: 20041206
  Receipt Date: 20041122
  Transmission Date: 20050328
  Serious: Yes (Hospitalization)
  Sender: FDA-Public Use
  Company Number: HQWYE646823NOV04

PATIENT
  Age: 47 Year
  Sex: Male

DRUGS (1)
  1. ADVIL [Suspect]
     Indication: SKIN LESION
     Dosage: 5% GEL, TWO APPLICATIONS DAILY TOPICAL
     Route: 061
     Dates: start: 20041020, end: 20041026

REACTIONS (6)
  - APPLICATION SITE REACTION [None]
  - CONDITION AGGRAVATED [None]
  - ECZEMA [None]
  - PRURITUS [None]
  - RASH [None]
  - SKIN TEST POSITIVE [None]
